FAERS Safety Report 8757731 (Version 2)
Quarter: 2012Q4

REPORT INFORMATION
  Report Type: 
  Country: JP (occurrence: JP)
  Receive Date: 20120828
  Receipt Date: 20120828
  Transmission Date: 20130627
  Serious: Yes (Other)
  Sender: FDA-Public Use
  Company Number: JP-009507513-1203USA03101

PATIENT

DRUGS (2)
  1. FOSAMAX [Suspect]
     Indication: METASTASES TO BONE
     Dosage: Daily dosage unknown
     Route: 048
  2. ZOLEDRONIC ACID [Suspect]
     Indication: METASTASES TO BONE
     Dosage: Daily dosage unknowns
     Route: 042

REACTIONS (2)
  - Femur fracture [Unknown]
  - Atypical femur fracture [None]
